FAERS Safety Report 5189580-9 (Version None)
Quarter: 2006Q4

REPORT INFORMATION
  Report Type: 
  Country: None (occurrence: None)
  Receive Date: 20061221
  Receipt Date: 20060607
  Transmission Date: 20070319
  Serious: No
  Sender: FDA-Public Use
  Company Number: US-AMGEN-KDL182299

PATIENT
  Sex: Male

DRUGS (1)
  1. ENBREL [Suspect]
     Indication: ANKYLOSING SPONDYLITIS
     Route: 058
     Dates: start: 20040101

REACTIONS (8)
  - ARTHRALGIA [None]
  - EXOSTOSIS [None]
  - JOINT STIFFNESS [None]
  - KNEE OPERATION [None]
  - MUSCULOSKELETAL STIFFNESS [None]
  - PAIN IN EXTREMITY [None]
  - TOE DEFORMITY [None]
  - UVEITIS [None]
